FAERS Safety Report 6019895-3 (Version None)
Quarter: 2008Q4

REPORT INFORMATION
  Report Type: 
  Country: None (occurrence: None)
  Receive Date: 20081222
  Receipt Date: 20081208
  Transmission Date: 20090506
  Serious: No
  Sender: FDA-Public Use
  Company Number: SPI200800547

PATIENT
  Age: 80 Year
  Sex: Male
  Weight: 131.5 kg

DRUGS (6)
  1. AMITIZA [Suspect]
     Indication: CONSTIPATION
     Dosage: 24 MCG, BID, ORAL
     Route: 048
     Dates: start: 20081110, end: 20080101
  2. BUMETANIDE [Concomitant]
  3. FINASTERIDE [Concomitant]
  4. THEOPHYLLINE [Concomitant]
  5. LOVASTATIN [Concomitant]
  6. ALLOPURINOL [Concomitant]

REACTIONS (5)
  - CHEST DISCOMFORT [None]
  - DRUG INEFFECTIVE [None]
  - DYSPNOEA [None]
  - FEELING ABNORMAL [None]
  - HEADACHE [None]
